FAERS Safety Report 19666441 (Version 1)
Quarter: 2021Q3

REPORT INFORMATION
  Report Type: Spontaneous
  Country: None (occurrence: GB)
  Receive Date: 20210806
  Receipt Date: 20210806
  Transmission Date: 20211014
  Serious: Yes (Disabling, Other)
  Sender: FDA-Public Use
  Company Number: GB-CHEPLA-2021000899

PATIENT
  Age: 18 Year
  Sex: Female
  Weight: 79.9 kg

DRUGS (7)
  1. ORLISTAT. [Suspect]
     Active Substance: ORLISTAT
     Indication: ABNORMAL WEIGHT GAIN
     Dosage: 60 MG/KG
     Route: 048
     Dates: start: 20190618
  2. OLANZAPINE. [Suspect]
     Active Substance: OLANZAPINE
     Indication: DRUG ABUSE
     Dosage: UNK
     Route: 048
     Dates: end: 20210621
  3. ARIPIPRAZOLE. [Suspect]
     Active Substance: ARIPIPRAZOLE
     Indication: PRODUCT USE IN UNAPPROVED INDICATION
     Dosage: 15 MG
     Route: 048
     Dates: start: 20170317
  4. DIPHENHYDRAMINE. [Suspect]
     Active Substance: DIPHENHYDRAMINE
     Indication: SLEEP DEFICIT
     Dosage: 25 MG
     Route: 048
     Dates: start: 20210202
  5. OLANZAPINE. [Suspect]
     Active Substance: OLANZAPINE
     Indication: PSYCHOTIC DISORDER
     Dosage: UNK
     Route: 048
     Dates: end: 20210621
  6. ARIPIPRAZOLE. [Suspect]
     Active Substance: ARIPIPRAZOLE
     Indication: PSYCHOTIC DISORDER
     Dosage: 15 MG
     Route: 048
     Dates: start: 20170317
  7. CLONAZEPAM. [Suspect]
     Active Substance: CLONAZEPAM
     Indication: AGITATION
     Dosage: 2 MG
     Route: 048
     Dates: start: 20210621

REACTIONS (3)
  - Psychotic disorder [Unknown]
  - Breast enlargement [Unknown]
  - Anxiety [Unknown]
